FAERS Safety Report 6766887-2 (Version None)
Quarter: 2010Q2

REPORT INFORMATION
  Report Type: 
  Country: None (occurrence: None)
  Receive Date: 20100611
  Receipt Date: 20100601
  Transmission Date: 20101027
  Serious: Yes (Death)
  Sender: FDA-Public Use
  Company Number: RS-WATSON-2010-07455

PATIENT
  Age: 54 Year
  Sex: Female

DRUGS (3)
  1. DEXAMETHASONE (WATSON LABORATORIES) [Suspect]
     Indication: PEMPHIGUS
     Dosage: 100 MG IN 500 ML OF 5% GLUCOSE INFUSION
     Route: 042
  2. CYCLOPHOSPHAMIDE [Suspect]
     Indication: PEMPHIGUS
     Dosage: 500 MG, EVERY 28 DAYS
     Route: 042
  3. CYCLOPHOSPHAMIDE [Suspect]
     Dosage: 50 MG, DAILY
     Route: 048

REACTIONS (2)
  - RENAL TUBULAR NECROSIS [None]
  - RHABDOMYOLYSIS [None]
